FAERS Safety Report 5388413-5 (Version None)
Quarter: 2007Q3

REPORT INFORMATION
  Report Type: 
  Country: None (occurrence: None)
  Receive Date: 20070716
  Receipt Date: 20070712
  Transmission Date: 20080115
  Serious: Yes (Death, Hospitalization, Other)
  Sender: FDA-Public Use
  Company Number: PHBS2007JP07391

PATIENT
  Age: 20 Year
  Sex: Male
  Weight: 55 kg

DRUGS (9)
  1. VOLTAREN [Suspect]
     Indication: PYREXIA
     Dosage: UNK, UNK
     Route: 048
  2. VOLTAREN [Suspect]
     Dosage: 25 MG/DAY
     Route: 054
     Dates: start: 20070322, end: 20070329
  3. LOXOPROFEN [Suspect]
     Indication: HEADACHE
     Dosage: 60 MG/DAY
     Route: 048
     Dates: start: 20070328, end: 20070403
  4. MEROPEN [Suspect]
     Indication: INFECTION
     Dosage: 1.5 G/DAY
     Route: 042
     Dates: start: 20070323, end: 20070328
  5. MINOCYCLINE HCL [Concomitant]
  6. ROCEPHIN [Concomitant]
  7. ZYVOX [Concomitant]
     Indication: PYREXIA
     Route: 041
     Dates: start: 20070329, end: 20070401
  8. AMIKACIN [Concomitant]
     Indication: PYREXIA
     Route: 042
     Dates: start: 20070329, end: 20070404
  9. FUNGUARD [Concomitant]
     Indication: PYREXIA
     Route: 042
     Dates: start: 20070329, end: 20070401

REACTIONS (25)
  - ALANINE AMINOTRANSFERASE INCREASED [None]
  - ASPARTATE AMINOTRANSFERASE INCREASED [None]
  - BLISTER [None]
  - BLOOD BILIRUBIN INCREASED [None]
  - BLOOD CREATININE INCREASED [None]
  - BLOOD PRESSURE INCREASED [None]
  - BLOOD UREA INCREASED [None]
  - DERMATITIS BULLOUS [None]
  - DISSEMINATED INTRAVASCULAR COAGULATION [None]
  - DRUG ERUPTION [None]
  - GAMMA-GLUTAMYLTRANSFERASE INCREASED [None]
  - HAEMATOCRIT DECREASED [None]
  - HAEMOGLOBIN DECREASED [None]
  - HISTIOCYTOSIS HAEMATOPHAGIC [None]
  - LIFE SUPPORT [None]
  - MELAENA [None]
  - MUCOSAL EROSION [None]
  - PLATELET COUNT DECREASED [None]
  - PNEUMONIA [None]
  - PULMONARY HAEMORRHAGE [None]
  - PYREXIA [None]
  - RED BLOOD CELL COUNT DECREASED [None]
  - SKIN EROSION [None]
  - STEVENS-JOHNSON SYNDROME [None]
  - WHITE BLOOD CELL COUNT INCREASED [None]
